FAERS Safety Report 16915764 (Version 1)
Quarter: 2019Q4

REPORT INFORMATION
  Report Type: Spontaneous
  Country: US (occurrence: US)
  Receive Date: 20190822
  Receipt Date: 20190822
  Transmission Date: 20200122
  Serious: No
  Sender: FDA-Public Use
  Company Number: None

PATIENT
  Age: 53 Year
  Sex: Female

DRUGS (1)
  1. H.P. ACTHAR [Suspect]
     Active Substance: CORTICOTROPIN
     Route: 058
     Dates: start: 201806

REACTIONS (5)
  - Chest discomfort [None]
  - Pulmonary function test decreased [None]
  - Sarcoidosis [None]
  - Pain [None]
  - Dyspnoea [None]

NARRATIVE: CASE EVENT DATE: 20190822
